FAERS Safety Report 4557727-0 (Version None)
Quarter: 2005Q1

REPORT INFORMATION
  Report Type: 
  Country: None (occurrence: None)
  Receive Date: 20050103
  Receipt Date: 20040804
  Transmission Date: 20050727
  Serious: Yes (Other)
  Sender: FDA-Public Use
  Company Number: 2004UW16632

PATIENT
  Age: 77 Year
  Sex: Female
  Weight: 59.4212 kg

DRUGS (5)
  1. CRESTOR [Suspect]
     Indication: BLOOD CHOLESTEROL INCREASED
     Dates: start: 20040401
  2. LEVOTHROID [Concomitant]
  3. AMITRIPTYLINE [Concomitant]
  4. KLONOPIN [Concomitant]
  5. PRILOSEC [Concomitant]

REACTIONS (3)
  - ASTHENIA [None]
  - FEELING HOT [None]
  - MYALGIA [None]
